FAERS Safety Report 23057382 (Version 2)
Quarter: 2023Q4

REPORT INFORMATION
  Report Type: Spontaneous
  Country: US (occurrence: US)
  Receive Date: 20231012
  Receipt Date: 20231023
  Transmission Date: 20240110
  Serious: Yes (Hospitalization)
  Sender: FDA-Public Use
  Company Number: US-TEVA-2023-US-2933070

PATIENT
  Age: 58 Year
  Sex: Female

DRUGS (2)
  1. BUPRENORPHINE\NALOXONE [Suspect]
     Active Substance: BUPRENORPHINE\NALOXONE
     Indication: Drug dependence
     Dosage: FORMULATION: FILM (ONE-HALF OF BUPRENORPHINE 8MG/NALOXONE 2MG FILM WAS ADMINISTERED)
     Route: 065
  2. FENTANYL [Suspect]
     Active Substance: FENTANYL\FENTANYL CITRATE
     Indication: Product used for unknown indication
     Route: 045

REACTIONS (8)
  - Drug withdrawal syndrome [Unknown]
  - Agitation [Recovering/Resolving]
  - Hyperhidrosis [Recovering/Resolving]
  - Tachycardia [Recovering/Resolving]
  - Abdominal pain [Recovering/Resolving]
  - Tachypnoea [Recovering/Resolving]
  - Myalgia [Recovering/Resolving]
  - Drug dependence [Unknown]
